FAERS Safety Report 15135002 (Version 1)
Quarter: 2018Q3

REPORT INFORMATION
  Report Type: Spontaneous
  Country: US (occurrence: US)
  Receive Date: 20180712
  Receipt Date: 20180712
  Transmission Date: 20181010
  Serious: No
  Sender: FDA-Public Use
  Company Number: US-PFIZER INC-2018279970

PATIENT
  Age: 10 Year
  Sex: Male

DRUGS (1)
  1. GENOTROPIN [Suspect]
     Active Substance: SOMATROPIN
     Dosage: 1.4 MG, DAILY
     Dates: start: 2014

REACTIONS (7)
  - Muscular weakness [Recovered/Resolved]
  - Asthenia [Unknown]
  - Lymphadenopathy [Unknown]
  - Poor quality sleep [Unknown]
  - Fall [Recovering/Resolving]
  - Joint swelling [Unknown]
  - Pain in extremity [Unknown]
